FAERS Safety Report 11995363 (Version 1)
Quarter: 2016Q1

REPORT INFORMATION
  Report Type: Report from Study
  Country: US (occurrence: US)
  Receive Date: 20160203
  Receipt Date: 20160203
  Transmission Date: 20160526
  Serious: Yes (Life-Threatening, Hospitalization)
  Sender: FDA-Public Use
  Company Number: US-TEVA-630359USA

PATIENT
  Age: 47 Year
  Sex: Female
  Weight: 53.2 kg

DRUGS (7)
  1. DOXORUBICIN [Suspect]
     Active Substance: DOXORUBICIN
     Indication: SARCOMA METASTATIC
     Dosage: TOTAL DOSE 110 MG, BOLUS, CYCLE 2
     Route: 065
     Dates: start: 20121005, end: 20121005
  2. [REDACTED] [Suspect]
     Active Substance: UNSPECIFIED INGREDIENT
     Indication: SARCOMA METASTATIC
     Route: 065
     Dates: start: 20121013, end: 20121013
  3. BABY ASPIRIN [Suspect]
     Active Substance: ASPIRIN
     Indication: THROMBOSIS PROPHYLAXIS
     Dosage: 81 MILLIGRAM DAILY;
     Route: 048
     Dates: start: 20120501
  4. [REDACTED] [Suspect]
     Active Substance: UNSPECIFIED INGREDIENT
     Route: 065
     Dates: start: 20120921, end: 20120921
  5. AMBIEN [Concomitant]
     Active Substance: ZOLPIDEM TARTRATE
     Dates: start: 20120301
  6. DOXORUBICIN [Suspect]
     Active Substance: DOXORUBICIN
     Route: 065
     Dates: start: 20120914, end: 20121005
  7. EMEND [Concomitant]
     Active Substance: APREPITANT
     Dates: start: 20120914

REACTIONS (4)
  - Gastrointestinal haemorrhage [Recovering/Resolving]
  - Anaemia [Recovered/Resolved]
  - Febrile neutropenia [Recovered/Resolved]
  - Sepsis [Recovered/Resolved]

NARRATIVE: CASE EVENT DATE: 20121013
